FAERS Safety Report 6656150-2 (Version None)
Quarter: 2010Q1

REPORT INFORMATION
  Report Type: 
  Country: None (occurrence: None)
  Receive Date: 20100329
  Receipt Date: 20100309
  Transmission Date: 20100710
  Serious: Yes (Other)
  Sender: FDA-Public Use
  Company Number: PHHY2010DE18332

PATIENT
  Sex: Male

DRUGS (3)
  1. EXELON [Suspect]
     Indication: MEMORY IMPAIRMENT
     Dosage: 1 MG, QD
     Dates: start: 20061006
  2. EXELON [Suspect]
     Dosage: 1 DF, BID
     Dates: start: 20061023
  3. EXELON [Suspect]
     Dosage: 3 MG, BID
     Dates: start: 20061120

REACTIONS (10)
  - ABNORMAL BEHAVIOUR [None]
  - APHASIA [None]
  - BLADDER OPERATION [None]
  - DEMENTIA [None]
  - DIZZINESS [None]
  - FATIGUE [None]
  - MEMORY IMPAIRMENT [None]
  - SOMNOLENCE [None]
  - TRANSURETHRAL PROSTATECTOMY [None]
  - URINARY INCONTINENCE [None]
